FAERS Safety Report 7757092-1 (Version None)
Quarter: 2011Q3

REPORT INFORMATION
  Report Type: 
  Country: None (occurrence: None)
  Receive Date: 20110916
  Receipt Date: 20110913
  Transmission Date: 20111222
  Serious: Yes (Hospitalization)
  Sender: FDA-Public Use
  Company Number: US-BRISTOL-MYERS SQUIBB COMPANY-16055329

PATIENT
  Age: 51 Year
  Sex: Female
  Weight: 53 kg

DRUGS (2)
  1. TAXOL [Suspect]
     Indication: NON-SMALL CELL LUNG CANCER
     Dosage: RECENT INF 29AUG11
     Dates: start: 20110725
  2. CARBOPLATIN [Suspect]
     Indication: NON-SMALL CELL LUNG CANCER
     Dosage: RECENT INF 29AUG11
     Dates: start: 20110724

REACTIONS (7)
  - OESOPHAGITIS [None]
  - SINUS TACHYCARDIA [None]
  - FATIGUE [None]
  - NAUSEA [None]
  - PAIN [None]
  - DYSPHAGIA [None]
  - DYSPNOEA [None]
